FAERS Safety Report 10272503 (Version 2)
Quarter: 2014Q3

REPORT INFORMATION
  Report Type: Report from Study
  Country: ES (occurrence: ES)
  Receive Date: 20140702
  Receipt Date: 20140702
  Transmission Date: 20150326
  Serious: Yes (Hospitalization, Other)
  Sender: FDA-Public Use
  Company Number: ES-BAYER-2014-098863

PATIENT
  Age: 60 Year
  Sex: Female

DRUGS (8)
  1. VENTAVIS [Suspect]
     Active Substance: ILOPROST
     Indication: PULMONARY HYPERTENSION
     Dosage: 5 INHALATIONS PER DAY (HALF OF DOSE).
     Dates: start: 20140528
  2. SILDENAFIL [Concomitant]
     Active Substance: SILDENAFIL
  3. SIMVASTATIN. [Concomitant]
     Active Substance: SIMVASTATIN
  4. INSULIN [Concomitant]
     Active Substance: INSULIN NOS
  5. FUROSEMIDE. [Concomitant]
     Active Substance: FUROSEMIDE
  6. VENTAVIS [Interacting]
     Active Substance: ILOPROST
     Indication: PULMONARY HYPERTENSION
     Dosage: UNK
     Dates: start: 20140609
  7. EUCREAS [Concomitant]
     Active Substance: METFORMIN HYDROCHLORIDE\VILDAGLIPTIN
  8. ADIRO 100 [Interacting]
     Active Substance: ASPIRIN

REACTIONS (7)
  - Asthenia [Recovered/Resolved]
  - Decreased appetite [Recovered/Resolved]
  - Pulmonary hypertension [None]
  - Oxygen saturation decreased [Unknown]
  - Labelled drug-drug interaction medication error [None]
  - Asthenia [Unknown]
  - Haemoptysis [Recovered/Resolved]

NARRATIVE: CASE EVENT DATE: 2014
